FAERS Safety Report 9804594 (Version 2)
Quarter: 2014Q1

REPORT INFORMATION
  Report Type: Spontaneous
  Country: US (occurrence: US)
  Receive Date: 20140108
  Receipt Date: 20140212
  Transmission Date: 20141002
  Serious: Yes (Other)
  Sender: FDA-Public Use
  Company Number: US-AMGEN-USASP2014000518

PATIENT
  Age: 83 Year
  Sex: Female
  Weight: 69.84 kg

DRUGS (1)
  1. PROLIA [Suspect]
     Indication: OSTEOPOROSIS POSTMENOPAUSAL
     Dosage: 60 MG, UNK
     Route: 058
     Dates: start: 20131213

REACTIONS (3)
  - Dysstasia [Unknown]
  - Pain [Unknown]
  - Back pain [Not Recovered/Not Resolved]
